FAERS Safety Report 19201197 (Version 1)
Quarter: 2021Q2

REPORT INFORMATION
  Report Type: Spontaneous
  Country: JP (occurrence: JP)
  Receive Date: 20210430
  Receipt Date: 20210430
  Transmission Date: 20210717
  Serious: Yes (Death, Disabling)
  Sender: FDA-Public Use
  Company Number: JP-009507513-2102JPN002390J

PATIENT
  Age: 9 Decade
  Sex: Female

DRUGS (1)
  1. KEYTRUDA [Suspect]
     Active Substance: PEMBROLIZUMAB
     Indication: TRANSITIONAL CELL CANCER OF THE RENAL PELVIS AND URETER
     Dosage: 200 MILLIGRAM, Q3W
     Route: 041
     Dates: start: 202101, end: 202101

REACTIONS (2)
  - Contusion [Fatal]
  - Fall [Fatal]

NARRATIVE: CASE EVENT DATE: 2021
